FAERS Safety Report 7557287-6 (Version None)
Quarter: 2011Q2

REPORT INFORMATION
  Report Type: 
  Country: None (occurrence: None)
  Receive Date: 20110620
  Receipt Date: 20080506
  Transmission Date: 20111010
  Serious: Yes (Death)
  Sender: FDA-Public Use
  Company Number: PHHY2008DE37518

PATIENT
  Sex: Female
  Weight: 63 kg

DRUGS (7)
  1. SANDOSTATIN [Suspect]
     Indication: NEUROENDOCRINE TUMOUR
     Dosage: UNK
     Route: 058
     Dates: start: 20080506
  2. PANTOPRAZOLE [Concomitant]
  3. BISOPROLOL FUMARATE [Concomitant]
     Dosage: 2.5 MG, BID
  4. CITALOPRAM [Concomitant]
  5. SANDOSTATIN LAR [Suspect]
     Indication: NEUROENDOCRINE TUMOUR
     Dosage: 20 MG, UNK
     Route: 030
     Dates: start: 20080101
  6. REUMAPLUS [Concomitant]
  7. SPIRONOLACTONE [Concomitant]

REACTIONS (2)
  - DEATH [None]
  - OEDEMA PERIPHERAL [None]
